FAERS Safety Report 9046856 (Version 1)
Quarter: 2013Q1

REPORT INFORMATION
  Report Type: Spontaneous
  Country: US (occurrence: None)
  Receive Date: 20130129
  Receipt Date: 20130129
  Transmission Date: 20140127
  Serious: No
  Sender: FDA-Public Use
  Company Number: None

PATIENT
  Age: 82 Year
  Sex: Male

DRUGS (1)
  1. BCG VACCINE [Suspect]
     Indication: BLADDER CANCER
     Dates: start: 201203

REACTIONS (3)
  - Testicular mass [None]
  - Mycobacterium tuberculosis complex test positive [None]
  - Culture positive [None]
